FAERS Safety Report 11241650 (Version 1)
Quarter: 2015Q3

REPORT INFORMATION
  Report Type: Spontaneous
  Country: US (occurrence: US)
  Receive Date: 20150706
  Receipt Date: 20150706
  Transmission Date: 20151125
  Serious: Yes (Other)
  Sender: FDA-Public Use
  Company Number: US-ELI_LILLY_AND_COMPANY-US201506010904

PATIENT
  Age: 50 Year
  Sex: Female

DRUGS (4)
  1. TYLENOL [Concomitant]
     Active Substance: ACETAMINOPHEN
  2. METOPROLOL [Concomitant]
     Active Substance: METOPROLOL
  3. EFFEXOR [Concomitant]
     Active Substance: VENLAFAXINE HYDROCHLORIDE
  4. FORTEO [Suspect]
     Active Substance: TERIPARATIDE
     Indication: STRESS FRACTURE
     Dosage: UNK, QD
     Route: 065
     Dates: start: 20150604

REACTIONS (2)
  - Deep vein thrombosis [Unknown]
  - Abasia [Unknown]

NARRATIVE: CASE EVENT DATE: 20150625
